FAERS Safety Report 5720673-0 (Version None)
Quarter: 2008Q2

REPORT INFORMATION
  Report Type: 
  Country: None (occurrence: None)
  Receive Date: 20080425
  Receipt Date: 20080425
  Transmission Date: 20081010
  Serious: Yes (Life-Threatening)
  Sender: FDA-Public Use
  Company Number: None

PATIENT
  Age: 62 Year
  Sex: Male
  Weight: 92.9874 kg

DRUGS (2)
  1. BENICAR HCT [Suspect]
     Indication: BLOOD PRESSURE
     Dosage: 25/12.5 1/DAY PO
     Route: 048
     Dates: start: 20060301, end: 20071201
  2. BENICAR [Suspect]
     Indication: BLOOD PRESSURE
     Dosage: 25 1/DAY PO
     Route: 048
     Dates: start: 20060301, end: 20071201

REACTIONS (13)
  - ASTHENIA [None]
  - ATRIAL FIBRILLATION [None]
  - BLOOD POTASSIUM DECREASED [None]
  - COUGH [None]
  - DEHYDRATION [None]
  - DIZZINESS [None]
  - DRUG INEFFECTIVE [None]
  - HEART RATE DECREASED [None]
  - HYPOTENSION [None]
  - MUSCLE SPASMS [None]
  - MYALGIA [None]
  - SNEEZING [None]
  - SYNCOPE [None]
